FAERS Safety Report 4395922-4 (Version None)
Quarter: 2004Q3

REPORT INFORMATION
  Report Type: 
  Country: None (occurrence: None)
  Receive Date: 20040713
  Receipt Date: 20040702
  Transmission Date: 20050211
  Serious: Yes (Disabling, Other)
  Sender: FDA-Public Use
  Company Number: GB-MERCK-0407GBR00031

PATIENT
  Age: 43 Year
  Sex: Female
  Weight: 72 kg

DRUGS (6)
  1. CETIRIZINE HYDROCHLORIDE [Concomitant]
     Indication: SEASONAL ALLERGY
     Route: 048
     Dates: start: 20020628
  2. CETIRIZINE HYDROCHLORIDE [Concomitant]
     Indication: HYPERSENSITIVITY
     Route: 048
     Dates: start: 20020628
  3. FLUTICASONE PROPIONATE AND SALMETEROL XINAFOATE [Concomitant]
     Indication: ASTHMA
     Route: 055
     Dates: start: 20030724
  4. SINGULAIR [Suspect]
     Indication: ASTHMA
     Route: 048
     Dates: start: 20030911, end: 20040325
  5. OMEPRAZOLE [Concomitant]
     Indication: OESOPHAGITIS
     Route: 048
     Dates: start: 20020628
  6. REBOXETINE [Concomitant]
     Indication: DEPRESSION
     Route: 048
     Dates: start: 20010201

REACTIONS (3)
  - FIBROMYALGIA [None]
  - POLYARTHRITIS [None]
  - POLYMYALGIA [None]
